FAERS Safety Report 24361810 (Version 4)
Quarter: 2024Q4

REPORT INFORMATION
  Report Type: Spontaneous
  Country: US (occurrence: US)
  Receive Date: 20240925
  Receipt Date: 20241021
  Transmission Date: 20250115
  Serious: Yes (Life-Threatening, Hospitalization, Other)
  Sender: PFIZER
  Company Number: US-PFIZER INC-PV202400124384

PATIENT
  Age: 89 Year
  Sex: Female

DRUGS (6)
  1. BUPIVACAINE HYDROCHLORIDE [Suspect]
     Active Substance: BUPIVACAINE HYDROCHLORIDE
     Indication: Analgesic therapy
     Dosage: UNK
  2. BUPIVACAINE HYDROCHLORIDE [Suspect]
     Active Substance: BUPIVACAINE HYDROCHLORIDE
     Indication: Nerve block
  3. EXPAREL [Suspect]
     Active Substance: BUPIVACAINE
     Indication: Analgesic therapy
     Dosage: UNK
     Route: 042
  4. EXPAREL [Suspect]
     Active Substance: BUPIVACAINE
     Indication: Nerve block
  5. ROPIVACAINE [Concomitant]
     Active Substance: ROPIVACAINE
     Indication: Analgesic therapy
     Dosage: UNK
  6. ROPIVACAINE [Concomitant]
     Active Substance: ROPIVACAINE
     Indication: Nerve block

REACTIONS (1)
  - Local anaesthetic systemic toxicity [Recovered/Resolved]
